FAERS Safety Report 6035063-3 (Version None)
Quarter: 2009Q1

REPORT INFORMATION
  Report Type: 
  Country: None (occurrence: None)
  Receive Date: 20090109
  Receipt Date: 20081221
  Transmission Date: 20090719
  Serious: Yes (Other)
  Sender: FDA-Public Use
  Company Number: ES-DEXPHARM-20081380

PATIENT
  Age: 89 Year
  Sex: Female

DRUGS (10)
  1. OMEPRAZOLE [Suspect]
  2. TRANZOPRIL [Concomitant]
  3. INSULIN [Concomitant]
  4. CARBIMAZOL [Concomitant]
  5. BROMAZEPAM [Concomitant]
  6. ACENOCUMAROL [Concomitant]
  7. PANTOPRAZOLE SODIUM [Concomitant]
  8. ACETAMINOPHEN [Concomitant]
  9. PIPERAZILIN/TAZOBACTAM [Concomitant]
  10. METRONIDAZOLE [Concomitant]

REACTIONS (3)
  - ACUTE GENERALISED EXANTHEMATOUS PUSTULOSIS [None]
  - COLITIS ISCHAEMIC [None]
  - GASTRITIS EROSIVE [None]
